FAERS Safety Report 8356710-7 (Version None)
Quarter: 2012Q2

REPORT INFORMATION
  Report Type: 
  Country: None (occurrence: None)
  Receive Date: 20120510
  Receipt Date: 20120510
  Transmission Date: 20120825
  Serious: No
  Sender: FDA-Public Use
  Company Number: None

PATIENT

DRUGS (1)
  1. LEVOTHYROXINE SODIUM [Suspect]
     Dosage: 15 YEARS AGO

REACTIONS (3)
  - THYROID FUNCTION TEST ABNORMAL [None]
  - PRODUCT SUBSTITUTION ISSUE [None]
  - PRODUCT QUALITY ISSUE [None]
